FAERS Safety Report 15559019 (Version 1)
Quarter: 2018Q4

REPORT INFORMATION
  Report Type: Spontaneous
  Country: FR (occurrence: FR)
  Receive Date: 20181029
  Receipt Date: 20181029
  Transmission Date: 20190205
  Serious: Yes (Hospitalization)
  Sender: FDA-Public Use
  Company Number: FR-ABBVIE-18P-056-2535420-00

PATIENT
  Age: 38 Year
  Sex: Female

DRUGS (2)
  1. ENANTONE LP [Suspect]
     Active Substance: LEUPROLIDE ACETATE
     Indication: ENDOMETRIOSIS
     Dosage: UNK
     Route: 058
     Dates: start: 2001
  2. CLIMASTON [Suspect]
     Active Substance: ESTRADIOL\PROGESTERONE
     Indication: ENDOMETRIOSIS
     Dosage: UNK
     Route: 048
     Dates: start: 2001

REACTIONS (1)
  - Benign neoplasm of orbit [Not Recovered/Not Resolved]

NARRATIVE: CASE EVENT DATE: 200509
